FAERS Safety Report 6607224-3 (Version None)
Quarter: 2010Q1

REPORT INFORMATION
  Report Type: 
  Country: None (occurrence: None)
  Receive Date: 20100227
  Receipt Date: 20100218
  Transmission Date: 20100710
  Serious: Yes (Hospitalization, Other)
  Sender: FDA-Public Use
  Company Number: JP-JNJFOC-20091205623

PATIENT
  Sex: Male

DRUGS (26)
  1. PLACEBO [Suspect]
     Indication: PROCEDURAL PAIN
     Route: 062
  2. PLACEBO [Suspect]
     Route: 062
  3. PLACEBO [Suspect]
     Indication: COMPLEX REGIONAL PAIN SYNDROME
     Route: 062
  4. PLACEBO [Suspect]
     Route: 062
  5. PLACEBO [Suspect]
     Indication: POST HERPETIC NEURALGIA
     Route: 062
  6. PLACEBO [Suspect]
     Route: 062
  7. FENTANYL-100 [Suspect]
     Indication: PROCEDURAL PAIN
     Route: 062
  8. FENTANYL-100 [Suspect]
     Route: 062
  9. FENTANYL-100 [Suspect]
     Route: 062
  10. FENTANYL-100 [Suspect]
     Indication: COMPLEX REGIONAL PAIN SYNDROME
     Route: 062
  11. FENTANYL-100 [Suspect]
     Route: 062
  12. FENTANYL-100 [Suspect]
     Route: 062
  13. FENTANYL-100 [Suspect]
     Indication: POST HERPETIC NEURALGIA
     Route: 062
  14. FENTANYL-100 [Suspect]
     Route: 062
  15. FENTANYL-100 [Suspect]
     Route: 062
  16. AMOXAN [Concomitant]
     Indication: ANALGESIC THERAPY
     Route: 048
  17. TOLEDOMIN [Concomitant]
     Indication: ANALGESIC THERAPY
     Route: 048
  18. SELBEX [Concomitant]
     Indication: GASTROINTESTINAL DISORDER THERAPY
     Route: 048
  19. NEUROTROPIN [Concomitant]
     Indication: ANALGESIC THERAPY
     Route: 048
  20. LEXOTAN [Concomitant]
     Indication: ANALGESIC THERAPY
     Route: 048
  21. METHYCOBAL [Concomitant]
     Indication: NEUROPATHY PERIPHERAL
     Route: 048
  22. MEILAX [Concomitant]
     Indication: ANALGESIC THERAPY
     Route: 048
  23. TEGRETOL [Concomitant]
     Indication: ANALGESIC THERAPY
     Route: 048
  24. PAXIL [Concomitant]
     Indication: ANALGESIC THERAPY
     Route: 048
  25. ATARAX [Concomitant]
     Indication: ANALGESIC THERAPY
     Route: 048
  26. SILECE [Concomitant]
     Indication: ANALGESIC THERAPY
     Route: 048

REACTIONS (1)
  - HAEMORRHOIDS [None]
